FAERS Safety Report 8855670 (Version 1)
Quarter: 2012Q4

REPORT INFORMATION
  Report Type: Spontaneous
  Country: US (occurrence: None)
  Receive Date: 20121019
  Receipt Date: 20121019
  Transmission Date: 20130627
  Serious: Yes (Other)
  Sender: FDA-Public Use
  Company Number: None

PATIENT
  Age: 37 Year
  Sex: Female
  Weight: 63.5 kg

DRUGS (2)
  1. LEVOTHYROXINE [Suspect]
     Indication: THYROIDECTOMY TOTAL
     Dosage: 112 mcg, 125 mcg, daily po
     Route: 048
     Dates: start: 20120728, end: 20121018
  2. TIROSINT [Suspect]
     Dosage: 137 mcg

REACTIONS (1)
  - Alopecia [None]
